FAERS Safety Report 8321207-7 (Version None)
Quarter: 2012Q2

REPORT INFORMATION
  Report Type: 
  Country: None (occurrence: None)
  Receive Date: 20120430
  Receipt Date: 20120417
  Transmission Date: 20120825
  Serious: Yes (Hospitalization, Other)
  Sender: FDA-Public Use
  Company Number: DE-AMGEN-DEUSP2011045491

PATIENT
  Age: 6 Year
  Sex: Male
  Weight: 28 kg

DRUGS (3)
  1. METHOTREXATE [Concomitant]
     Dosage: UNK
  2. ENBREL [Suspect]
     Indication: JUVENILE ARTHRITIS
     Dosage: 12.5 MG, 2X/WEEK
     Route: 058
     Dates: start: 20100801, end: 20110801
  3. ENBREL [Suspect]
     Dosage: 10 MG, 2X/WEEK
     Route: 058
     Dates: start: 20120301

REACTIONS (5)
  - ABNORMAL BEHAVIOUR [None]
  - MUSCLE TWITCHING [None]
  - JUVENILE ARTHRITIS [None]
  - RESTLESSNESS [None]
  - TIC [None]
